FAERS Safety Report 7641064-1 (Version None)
Quarter: 2011Q3

REPORT INFORMATION
  Report Type: 
  Country: None (occurrence: None)
  Receive Date: 20110728
  Receipt Date: 20091122
  Transmission Date: 20111222
  Serious: Yes (Death, Other)
  Sender: FDA-Public Use
  Company Number: US-BAYER-200940190NA

PATIENT
  Age: 67 Year
  Sex: Male
  Weight: 77.098 kg

DRUGS (9)
  1. HYDRALAZINE HCL [Concomitant]
     Dosage: 10MG
     Route: 048
  2. COUMADIN [Concomitant]
     Dosage: 5 MG, QD
     Route: 048
  3. TRASYLOL [Suspect]
     Indication: PRODUCT USED FOR UNKNOWN INDICATION
     Route: 042
     Dates: start: 20050101
  4. LISINOPRIL [Concomitant]
     Dosage: 19 MG, QD
     Route: 048
  5. PLAVIX [Concomitant]
     Dosage: 75 MG, QD
     Route: 048
  6. DEMADEX [Concomitant]
     Dosage: 60 MG, QD
     Route: 048
  7. COREG [Concomitant]
     Dosage: 6.25 MG, QD
     Route: 048
     Dates: start: 20041206
  8. AMIODARONE HCL [Concomitant]
     Dosage: 200MG
     Route: 048
  9. ACETYLSALICYLIC ACID SRT [Concomitant]
     Dosage: 81MG

REACTIONS (13)
  - EMOTIONAL DISTRESS [None]
  - FEAR [None]
  - DEATH [None]
  - RENAL IMPAIRMENT [None]
  - RENAL INJURY [None]
  - RENAL FAILURE [None]
  - MULTI-ORGAN FAILURE [None]
  - ANXIETY [None]
  - STRESS [None]
  - UNEVALUABLE EVENT [None]
  - PAIN [None]
  - INJURY [None]
  - ANHEDONIA [None]
